FAERS Safety Report 19441655 (Version 1)
Quarter: 2021Q2

REPORT INFORMATION
  Report Type: Spontaneous
  Country: US (occurrence: US)
  Receive Date: 20210617
  Receipt Date: 20210617
  Transmission Date: 20210717
  Serious: No
  Sender: FDA-Public Use
  Company Number: None

PATIENT
  Age: 71 Year
  Sex: Female

DRUGS (1)
  1. KYNMOBI [Suspect]
     Active Substance: APOMORPHINE HYDROCHLORIDE
     Dosage: ?          OTHER FREQUENCY:PRN;?
     Route: 060
     Dates: start: 202106

REACTIONS (4)
  - Lip swelling [None]
  - Throat irritation [None]
  - Swollen tongue [None]
  - Product use complaint [None]

NARRATIVE: CASE EVENT DATE: 20210617
